FAERS Safety Report 19007477 (Version 1)
Quarter: 2021Q1

REPORT INFORMATION
  Report Type: Spontaneous
  Country: US (occurrence: US)
  Receive Date: 20210315
  Receipt Date: 20210315
  Transmission Date: 20210420
  Serious: No
  Sender: FDA-Public Use
  Company Number: US-ELI_LILLY_AND_COMPANY-US202011009712

PATIENT
  Sex: Male

DRUGS (2)
  1. EMGALITY [Suspect]
     Active Substance: GALCANEZUMAB-GNLM
     Indication: MIGRAINE
     Dosage: 120 MG, UNKNOWN
     Route: 065
     Dates: start: 202010
  2. TYLENOL [Concomitant]
     Active Substance: ACETAMINOPHEN
     Indication: MIGRAINE

REACTIONS (7)
  - Nausea [Unknown]
  - Injection site rash [Unknown]
  - Product dose omission issue [Unknown]
  - Arthralgia [Unknown]
  - Fatigue [Unknown]
  - Swelling [Unknown]
  - Psoriatic arthropathy [Unknown]
